FAERS Safety Report 17170515 (Version 1)
Quarter: 2019Q4

REPORT INFORMATION
  Report Type: Spontaneous
  Country: US (occurrence: US)
  Receive Date: 20191218
  Receipt Date: 20191218
  Transmission Date: 20200122
  Serious: Yes (Other)
  Sender: FDA-Public Use
  Company Number: US-JNJFOC-20191213284

PATIENT
  Sex: Female

DRUGS (1)
  1. XARELTO [Suspect]
     Active Substance: RIVAROXABAN
     Indication: PRODUCT USED FOR UNKNOWN INDICATION
     Route: 048

REACTIONS (7)
  - Embolism [Unknown]
  - Deep vein thrombosis [Unknown]
  - Anxiety [Unknown]
  - Cold burn [Unknown]
  - Depression [Unknown]
  - Blindness transient [Unknown]
  - Neurosurgery [Unknown]
